FAERS Safety Report 4961852-X (Version None)
Quarter: 2006Q1

REPORT INFORMATION
  Report Type: 
  Country: None (occurrence: None)
  Receive Date: 20060329
  Receipt Date: 20060320
  Transmission Date: 20060701
  Serious: Yes (Other)
  Sender: FDA-Public Use
  Company Number: 2006038238

PATIENT
  Age: 25 Year
  Sex: Female
  Weight: 86.1834 kg

DRUGS (1)
  1. SUDAFED PE SINUS HEADACHE CAPLET (ACETAMINOPHEN, PHENYLEPHRINE HYDROCH [Suspect]
     Indication: SINUS HEADACHE
     Dosage: 2 CAPLETS ONCE DAILY, AS NEEDED, ORAL
     Route: 048
     Dates: start: 20050801

REACTIONS (7)
  - BLOOD IRON DECREASED [None]
  - BLOOD POTASSIUM DECREASED [None]
  - BLOOD PRESSURE INCREASED [None]
  - DRUG EXPOSURE DURING PREGNANCY [None]
  - DRUG SCREEN POSITIVE [None]
  - HEART RATE INCREASED [None]
  - SOMNOLENCE [None]
